FAERS Safety Report 8769594 (Version 1)
Quarter: 2012Q4

REPORT INFORMATION
  Report Type: 
  Country: US (occurrence: US)
  Receive Date: 20120904
  Receipt Date: 20120904
  Transmission Date: 20130627
  Serious: No
  Sender: FDA-Public Use
  Company Number: US-PFIZER INC-2012214924

PATIENT
  Age: 37 Year
  Sex: Female
  Weight: 90.7 kg

DRUGS (5)
  1. EFFEXOR XR [Suspect]
     Indication: MAJOR DEPRESSION
     Dosage: UNK
  2. EFFEXOR XR [Suspect]
     Indication: ANXIETY
     Dosage: 225 mg, daily
  3. EFFEXOR XR [Suspect]
     Dosage: 150 mg, daily
     Dates: end: 201205
  4. EFFEXOR XR [Suspect]
     Dosage: 300 mg, daily
     Dates: start: 2012
  5. MAXZIDE [Concomitant]
     Indication: HYPERTENSION
     Dosage: 25 mg, daily

REACTIONS (6)
  - Withdrawal syndrome [Recovered/Resolved]
  - Nausea [Recovered/Resolved]
  - Vomiting [Recovered/Resolved]
  - Mood swings [Recovered/Resolved]
  - Crying [Recovered/Resolved]
  - Anger [Recovered/Resolved]
